FAERS Safety Report 4963609-2 (Version None)
Quarter: 2006Q1

REPORT INFORMATION
  Report Type: 
  Country: None (occurrence: None)
  Receive Date: 20060330
  Receipt Date: 20060320
  Transmission Date: 20060701
  Serious: Yes (Disabling, Other)
  Sender: FDA-Public Use
  Company Number: 2006034221

PATIENT
  Age: 78 Year
  Sex: Female
  Weight: 60.782 kg

DRUGS (6)
  1. ARTHROTEC [Suspect]
     Indication: BACK PAIN
     Dosage: 75 MG (75 MG, 1 IN 1 D), ORAL
     Route: 048
     Dates: start: 20060201, end: 20060301
  2. LYRICA [Suspect]
     Indication: BACK PAIN
     Dosage: 1500 MG (75 MG, BID), ORAL
     Route: 048
     Dates: start: 20060201, end: 20060301
  3. NOVOGESIC (PARACETAMOL) [Concomitant]
  4. GLYBURIDE [Concomitant]
  5. METFORMIN [Concomitant]
  6. FOSAMAX [Concomitant]

REACTIONS (4)
  - ABDOMINAL DISTENSION [None]
  - ABDOMINAL PAIN [None]
  - ABDOMINAL PAIN UPPER [None]
  - ACTIVITIES OF DAILY LIVING IMPAIRED [None]
